FAERS Safety Report 8509867-9 (Version None)
Quarter: 2012Q3

REPORT INFORMATION
  Report Type: 
  Country: None (occurrence: None)
  Receive Date: 20120713
  Receipt Date: 20120710
  Transmission Date: 20120928
  Serious: Yes (Other)
  Sender: FDA-Public Use
  Company Number: PHHY2011CN109805

PATIENT
  Sex: Female

DRUGS (1)
  1. SEBIVO [Suspect]
     Dosage: 1 DF, QD
     Route: 048
     Dates: start: 20110801, end: 20120605

REACTIONS (3)
  - NORMAL NEWBORN [None]
  - AMNIOTIC FLUID VOLUME DECREASED [None]
  - MATERNAL EXPOSURE DURING PREGNANCY [None]
